FAERS Safety Report 8974195 (Version 2)
Quarter: 2013Q4

REPORT INFORMATION
  Report Type: Spontaneous
  Country: GB (occurrence: None)
  Receive Date: 20121212
  Receipt Date: 20131003
  Transmission Date: 20140711
  Serious: Yes (Hospitalization, Other)
  Sender: FDA-Public Use
  Company Number: 1511480

PATIENT
  Age: 58 Year
  Sex: Male

DRUGS (5)
  1. EPIRUBICIN HYDROCHLORIDE [Suspect]
     Indication: ADENOCARCINOMA GASTRIC
  2. OXALIPLATIN [Suspect]
     Indication: ADENOCARCINOMA GASTRIC
  3. CLOZARIL [Suspect]
     Indication: SCHIZOPHRENIA
     Route: 048
     Dates: start: 20010701, end: 20120718
  4. CAPECITABINE [Suspect]
     Indication: ADENOCARCINOMA GASTRIC
  5. HALOPERIDOL [Concomitant]

REACTIONS (6)
  - White blood cell count decreased [None]
  - Neutrophil count decreased [None]
  - Malaise [None]
  - Diarrhoea [None]
  - Vomiting [None]
  - Weight decreased [None]
